FAERS Safety Report 5513797-4 (Version None)
Quarter: 2007Q4

REPORT INFORMATION
  Report Type: 
  Country: None (occurrence: None)
  Receive Date: 20071113
  Receipt Date: 20071102
  Transmission Date: 20080405
  Serious: Yes (Hospitalization, Other)
  Sender: FDA-Public Use
  Company Number: PHBS2007DE18487

PATIENT
  Age: 33 Year
  Sex: Female

DRUGS (4)
  1. MYCOPHENOLIC ACID [Suspect]
     Indication: RENAL AND PANCREAS TRANSPLANT
     Dates: start: 20060201
  2. HYDROCORTISONE [Concomitant]
     Indication: TRANSPLANT
     Dosage: 240 MG/24 HRS
  3. TACROLIMUS [Suspect]
     Indication: TRANSPLANT
     Dates: start: 20060201
  4. PREDNISONE [Suspect]
     Indication: TRANSPLANT
     Dates: start: 20060201

REACTIONS (34)
  - ABDOMINAL PAIN [None]
  - ACUTE RESPIRATORY DISTRESS SYNDROME [None]
  - AMMONIA INCREASED [None]
  - ANURIA [None]
  - ASPARTATE AMINOTRANSFERASE INCREASED [None]
  - BIOPSY LIVER ABNORMAL [None]
  - BLOOD ALKALINE PHOSPHATASE INCREASED [None]
  - BLOOD CREATININE INCREASED [None]
  - C-REACTIVE PROTEIN INCREASED [None]
  - CHEST X-RAY ABNORMAL [None]
  - COMA HEPATIC [None]
  - GENITAL HERPES [None]
  - HAEMODIALYSIS [None]
  - HAEMOGLOBIN DECREASED [None]
  - HEPATIC ENCEPHALOPATHY [None]
  - HEPATIC FAILURE [None]
  - HEPATITIS FULMINANT [None]
  - HERPES SIMPLEX [None]
  - IMMUNOSUPPRESSANT DRUG LEVEL INCREASED [None]
  - INTERNATIONAL NORMALISED RATIO INCREASED [None]
  - KIDNEY TRANSPLANT REJECTION [None]
  - LIVER TRANSPLANT [None]
  - LIVER TRANSPLANT REJECTION [None]
  - MECHANICAL VENTILATION [None]
  - METABOLIC ACIDOSIS [None]
  - PLEURAL EFFUSION [None]
  - PNEUMONIA ESCHERICHIA [None]
  - PYREXIA [None]
  - RENAL FAILURE [None]
  - SEPSIS [None]
  - TRANSAMINASES INCREASED [None]
  - VAGINAL CANDIDIASIS [None]
  - VAGINAL LESION [None]
  - WHITE BLOOD CELL COUNT INCREASED [None]
